FAERS Safety Report 17840474 (Version 1)
Quarter: 2020Q2

REPORT INFORMATION
  Report Type: Spontaneous
  Country: US (occurrence: US)
  Receive Date: 20200529
  Receipt Date: 20200529
  Transmission Date: 20200714
  Serious: No
  Sender: FDA-Public Use
  Company Number: US-ACCORD-166938

PATIENT
  Age: 58 Year
  Sex: Male

DRUGS (1)
  1. CLONAZEPAM ACCORD [Suspect]
     Active Substance: CLONAZEPAM
     Indication: GENERALISED ANXIETY DISORDER
     Dosage: 1 MG TABLET AND TAKING 1/2 TABLET?STRENGTH: 1 MG

REACTIONS (1)
  - Dizziness [Not Recovered/Not Resolved]
